FAERS Safety Report 6161493-5 (Version None)
Quarter: 2009Q2

REPORT INFORMATION
  Report Type: 
  Country: None (occurrence: None)
  Receive Date: 20090421
  Receipt Date: 20090413
  Transmission Date: 20091009
  Serious: Yes (Disabling, Other)
  Sender: FDA-Public Use
  Company Number: PHHY2009BR14110

PATIENT
  Age: 87 Year
  Sex: Female

DRUGS (4)
  1. EXELON [Suspect]
     Dosage: 9 MG/5CM2
     Route: 062
     Dates: end: 20090412
  2. EXELON [Suspect]
     Dosage: 18MG/10CM2
     Route: 062
     Dates: start: 20090413
  3. EXELON [Suspect]
     Dosage: 6 MG, 1 DF, AM, 1DF PMPM
     Route: 048
  4. GARDENAL [Concomitant]
     Indication: CONVULSION
     Dosage: 1 TABLET
     Route: 048
     Dates: start: 20090402

REACTIONS (4)
  - CONVULSION [None]
  - GASTROINTESTINAL TUBE INSERTION [None]
  - HYPERSENSITIVITY [None]
  - RASH PAPULAR [None]
